FAERS Safety Report 18456725 (Version 3)
Quarter: 2020Q4

REPORT INFORMATION
  Report Type: Spontaneous
  Country: US (occurrence: US)
  Receive Date: 20201103
  Receipt Date: 20201217
  Transmission Date: 20210114
  Serious: Yes (Other)
  Sender: FDA-Public Use
  Company Number: US-BIOVITRUM-2020US5898

PATIENT
  Sex: Male

DRUGS (7)
  1. CALCITRIOL. [Concomitant]
     Active Substance: CALCITRIOL
  2. SILDENAFIL. [Concomitant]
     Active Substance: SILDENAFIL
  3. IPRATROPIUM [Concomitant]
     Active Substance: IPRATROPIUM
  4. SYNAGIS [Suspect]
     Active Substance: PALIVIZUMAB
     Indication: ANTIVIRAL PROPHYLAXIS
     Route: 030
  5. ALBUTEROL SULFATE. [Concomitant]
     Active Substance: ALBUTEROL SULFATE
  6. POLY-VI-SOL/IRON [Concomitant]
  7. BUDESONIDE. [Concomitant]
     Active Substance: BUDESONIDE

REACTIONS (4)
  - Inappropriate schedule of product administration [Unknown]
  - Rhinovirus infection [Unknown]
  - Nasopharyngitis [Unknown]
  - Enterovirus infection [Unknown]
